FAERS Safety Report 8340094-4 (Version None)
Quarter: 2012Q2

REPORT INFORMATION
  Report Type: 
  Country: None (occurrence: None)
  Receive Date: 20120507
  Receipt Date: 20120426
  Transmission Date: 20120825
  Serious: Yes (Hospitalization)
  Sender: FDA-Public Use
  Company Number: JP-ASTRAZENECA-2012SE18101

PATIENT
  Age: 78 Year
  Sex: Female
  Weight: 52 kg

DRUGS (17)
  1. RABEPRAZOLE SODIUM [Concomitant]
     Route: 048
  2. UNKNOWNDRUG [Suspect]
     Route: 048
     Dates: start: 20111115, end: 20120221
  3. MONTELUKAST SODIUM [Concomitant]
     Route: 048
  4. OLMESARTAN MEDOXOMIL [Concomitant]
     Route: 048
  5. ALFAROL [Concomitant]
     Route: 048
  6. SYMBICORT [Suspect]
     Indication: ASTHMA
     Dosage: 2 DF, TWO TIMES A DAY
     Route: 055
  7. ZOLPIDEM [Suspect]
     Route: 048
  8. MAGNESIUM SULFATE [Concomitant]
     Route: 048
  9. SOFTEAR [Concomitant]
     Dosage: THREE TIMES A DAY
     Route: 047
  10. TOLTERODINE TARTRATE [Concomitant]
     Route: 048
     Dates: end: 20111031
  11. ERYTHROCIN [Concomitant]
     Route: 048
  12. AMLODIPINE [Concomitant]
     Route: 048
  13. PRANOPROFEN [Concomitant]
     Dosage: THREE TIMES A DAY
     Route: 047
  14. PREDNISOLONE [Concomitant]
     Route: 048
  15. UNKNOWNDRUG [Suspect]
     Route: 048
     Dates: start: 20111101, end: 20111115
  16. MUCOSOLVAN L [Concomitant]
     Route: 048
  17. PRAVASTAN [Concomitant]
     Route: 048

REACTIONS (2)
  - VENTRICULAR ARRHYTHMIA [None]
  - AORTIC DISSECTION [None]
